FAERS Safety Report 9736708 (Version 1)
Quarter: 2013Q4

REPORT INFORMATION
  Report Type: Spontaneous
  Country: US (occurrence: US)
  Receive Date: 20131206
  Receipt Date: 20131206
  Transmission Date: 20140711
  Serious: No
  Sender: FDA-Public Use
  Company Number: US-GILEAD-2009-0023939

PATIENT
  Age: 84 Year
  Sex: Female

DRUGS (11)
  1. LETAIRIS [Suspect]
     Indication: PULMONARY ARTERIAL HYPERTENSION
     Route: 048
     Dates: start: 20090803, end: 20090819
  2. ASPIRIN [Concomitant]
  3. FUROSEMIDE [Concomitant]
  4. CATAPRES [Concomitant]
  5. TOPROL [Concomitant]
  6. LIPITOR [Concomitant]
  7. VIACTIV [Concomitant]
  8. PREDNISONE [Concomitant]
  9. ZOLOFT [Concomitant]
  10. PROBENECID [Concomitant]
  11. DILANTIN [Concomitant]

REACTIONS (1)
  - Local swelling [Recovered/Resolved]
